APPROVED DRUG PRODUCT: MICONAZOLE NITRATE
Active Ingredient: MICONAZOLE NITRATE
Strength: 100MG
Dosage Form/Route: SUPPOSITORY;VAGINAL
Application: A073507 | Product #001
Applicant: COSETTE PHARMACEUTICALS INC
Approved: Nov 19, 1993 | RLD: No | RS: No | Type: OTC